FAERS Safety Report 16347173 (Version 16)
Quarter: 2023Q1

REPORT INFORMATION
  Report Type: Report from Study
  Country: CA (occurrence: CA)
  Receive Date: 20190523
  Receipt Date: 20230316
  Transmission Date: 20230418
  Serious: Yes (Other)
  Sender: FDA-Public Use
  Company Number: PHHY2019CA113991

PATIENT
  Age: 36 Year
  Sex: Male

DRUGS (6)
  1. COSENTYX [Suspect]
     Active Substance: SECUKINUMAB
     Indication: Ankylosing spondylitis
     Dosage: 150 MG, QMO
     Route: 058
     Dates: start: 20190403
  2. COSENTYX [Suspect]
     Active Substance: SECUKINUMAB
     Dosage: 150 MG, QMO
     Route: 058
     Dates: start: 20190501
  3. COSENTYX [Suspect]
     Active Substance: SECUKINUMAB
     Dosage: 150 MG, QMO
     Route: 058
     Dates: start: 20200411
  4. COSENTYX [Suspect]
     Active Substance: SECUKINUMAB
     Dosage: 150 MG, QMO
     Route: 058
     Dates: start: 20221023
  5. FLEXERIL [Concomitant]
     Active Substance: CYCLOBENZAPRINE HYDROCHLORIDE
     Indication: Product used for unknown indication
     Dosage: UNK UNK, PRN
     Route: 065
  6. PIROXICAM [Concomitant]
     Active Substance: PIROXICAM
     Indication: Product used for unknown indication
     Dosage: UNK UNK, PRN
     Route: 065

REACTIONS (24)
  - Tooth abscess [Unknown]
  - Rectal haemorrhage [Unknown]
  - Ankylosing spondylitis [Recovering/Resolving]
  - Arthralgia [Unknown]
  - Neck pain [Unknown]
  - Back pain [Unknown]
  - Joint swelling [Not Recovered/Not Resolved]
  - C-reactive protein increased [Unknown]
  - Discomfort [Not Recovered/Not Resolved]
  - Fatigue [Unknown]
  - Back pain [Recovered/Resolved]
  - Pain in extremity [Recovering/Resolving]
  - Dysstasia [Unknown]
  - Acne [Unknown]
  - Erythema [Unknown]
  - Pruritus [Unknown]
  - Oropharyngeal pain [Unknown]
  - Headache [Unknown]
  - Skin plaque [Unknown]
  - Herpes zoster [Unknown]
  - Mouth ulceration [Unknown]
  - Skin lesion [Unknown]
  - Rhinitis [Recovered/Resolved]
  - Contraindicated product administered [Unknown]

NARRATIVE: CASE EVENT DATE: 20190501
